FAERS Safety Report 7069571-3 (Version None)
Quarter: 2010Q4

REPORT INFORMATION
  Report Type: 
  Country: None (occurrence: None)
  Receive Date: 20101028
  Receipt Date: 20100423
  Transmission Date: 20110411
  Serious: Yes (Hospitalization)
  Sender: FDA-Public Use
  Company Number: US-WYE-H14759010

PATIENT
  Age: 90 Year
  Sex: Male

DRUGS (3)
  1. AMIODARONE HCL [Suspect]
     Indication: ATRIAL FIBRILLATION
     Dosage: ^LOADING DOSE^
  2. AMIODARONE HCL [Suspect]
  3. WARFARIN SODIUM [Concomitant]
     Indication: ATRIAL FIBRILLATION
     Dosage: INIATED 18 MONTHS PRIOR TO THE EVENT-DOSAGE NOT PROVIDED

REACTIONS (2)
  - HEPATOTOXICITY [None]
  - NEUROTOXICITY [None]
